FAERS Safety Report 4519844-0 (Version None)
Quarter: 2004Q4

REPORT INFORMATION
  Report Type: 
  Country: None (occurrence: None)
  Receive Date: 20041207
  Receipt Date: 20041122
  Transmission Date: 20050328
  Serious: Yes (Other)
  Sender: FDA-Public Use
  Company Number: US-JNJFOC-20040701869

PATIENT
  Sex: Female
  Weight: 120.2 kg

DRUGS (22)
  1. TOPAMAX [Suspect]
     Route: 049
  2. TOPAMAX [Suspect]
     Dosage: (2) 25 MG TABS/DAY
     Route: 049
  3. TOPAMAX [Suspect]
     Dosage: (3) 25 MG TABS/DAY
     Route: 049
  4. TOPAMAX [Suspect]
     Route: 049
  5. TOPAMAX [Suspect]
     Indication: PAIN MANAGEMENT
     Route: 049
  6. TOPAMAX [Suspect]
     Dosage: 25 MG TABS (4) AT NIGHT.
     Route: 049
  7. TEGRETOL [Concomitant]
  8. VIOXX [Concomitant]
  9. SYNTHROID [Concomitant]
  10. KLONIPIN [Concomitant]
  11. ROBAXIN [Concomitant]
  12. DETROL LA [Concomitant]
  13. SERTRALINE HYDROCHLORIDE [Concomitant]
  14. SERTRALINE HYDROCHLORIDE [Concomitant]
  15. SERTRALINE HYDROCHLORIDE [Concomitant]
  16. LISINOPRIL [Concomitant]
  17. ZANAFLEX [Concomitant]
     Dosage: (2) AT NIGHT AND (1) IN THE MORNING.
  18. NEXIUM [Concomitant]
     Dosage: (2) AT NIGHT AND (1) IN THE MORNING.
  19. CLARINEX [Concomitant]
  20. BENADRYL ULTRA [Concomitant]
  21. COMBIVENT [Concomitant]
  22. COMBIVENT [Concomitant]
     Dosage: 2 PUFFS/3 TIMES A DAY.

REACTIONS (46)
  - ALOPECIA [None]
  - ANHIDROSIS [None]
  - ARRHYTHMIA [None]
  - BALANCE DISORDER [None]
  - BLOOD GLUCOSE INCREASED [None]
  - CATARACT [None]
  - CEREBROVASCULAR ACCIDENT [None]
  - COUGH [None]
  - DIARRHOEA [None]
  - DIPLOPIA [None]
  - DIZZINESS [None]
  - DRY SKIN [None]
  - DYSARTHRIA [None]
  - DYSGEUSIA [None]
  - DYSPNOEA [None]
  - EAR PAIN [None]
  - ENCEPHALOMALACIA [None]
  - GASTROOESOPHAGEAL REFLUX DISEASE [None]
  - GLIOSIS [None]
  - HEADACHE [None]
  - HEAT STROKE [None]
  - HEMIPARESIS [None]
  - HOARSENESS [None]
  - HYPOAESTHESIA [None]
  - JOINT STIFFNESS [None]
  - JOINT SWELLING [None]
  - LOOSE STOOLS [None]
  - LYMPHADENOPATHY [None]
  - MEAN CELL HAEMOGLOBIN INCREASED [None]
  - MONARTHRITIS [None]
  - MOOD SWINGS [None]
  - MYALGIA [None]
  - PAROSMIA [None]
  - PCO2 DECREASED [None]
  - PERSONALITY CHANGE [None]
  - PHARYNGOLARYNGEAL PAIN [None]
  - PLATELET COUNT INCREASED [None]
  - SINUS PAIN [None]
  - SLEEP DISORDER [None]
  - THIRST [None]
  - TINNITUS [None]
  - UNEXPECTED THERAPEUTIC DRUG EFFECT [None]
  - VERTIGO [None]
  - VISION BLURRED [None]
  - WEIGHT DECREASED [None]
  - WEIGHT INCREASED [None]
